FAERS Safety Report 10339749 (Version 1)
Quarter: 2014Q3

REPORT INFORMATION
  Report Type: Spontaneous
  Country: US (occurrence: None)
  Receive Date: 20140723
  Receipt Date: 20140723
  Transmission Date: 20150326
  Serious: Yes (Other)
  Sender: FDA-Public Use
  Company Number: None

PATIENT
  Age: 45 Year
  Sex: Female
  Weight: 65.77 kg

DRUGS (2)
  1. DYLEXTINE [Suspect]
     Active Substance: DULOXETINE
     Indication: DEPRESSION
     Dosage: 2 CAPS TWICE DAILY TAKEN BY MOUTH
     Route: 048
     Dates: start: 20140721
  2. LAMOTRIGINE. [Suspect]
     Active Substance: LAMOTRIGINE
     Indication: DEPRESSION
     Dosage: 1 1/2 PILLS TWICE DAILY TAKEN BY MOUTH
     Route: 048
     Dates: start: 20140721

REACTIONS (12)
  - Eye irritation [None]
  - Pruritus [None]
  - Amnesia [None]
  - Oropharyngeal pain [None]
  - Dry mouth [None]
  - Dizziness [None]
  - Fatigue [None]
  - Disturbance in attention [None]
  - Constipation [None]
  - Quality of life decreased [None]
  - Heart rate increased [None]
  - Syncope [None]

NARRATIVE: CASE EVENT DATE: 20080701
